FAERS Safety Report 7230464-X (Version None)
Quarter: 2011Q1

REPORT INFORMATION
  Report Type: 
  Country: None (occurrence: None)
  Receive Date: 20110118
  Receipt Date: 20110112
  Transmission Date: 20110831
  Serious: Yes (Hospitalization, Other)
  Sender: FDA-Public Use
  Company Number: FR-BRISTOL-MYERS SQUIBB COMPANY-15444755

PATIENT
  Age: 79 Year
  Sex: Female

DRUGS (10)
  1. ENALAPRIL MALEATE [Concomitant]
     Dosage: 1 DF = 1 TAB
     Dates: end: 20101025
  2. LOVENOX [Concomitant]
     Dosage: LOVENOX 4000 1 INJECTION
     Route: 058
  3. ESIDRIX [Concomitant]
     Dosage: ESIDREX 0.5MG;1DF:1TABLET
     Dates: end: 20101212
  4. DEXERYL [Concomitant]
  5. GLUCOSE [Concomitant]
     Indication: DEHYDRATION
  6. AVLOCARDYL [Concomitant]
     Dosage: 1DF:2 TABLETS
     Dates: end: 20101212
  7. NEXIUM [Concomitant]
     Dosage: 1 DF= 20MG, ONE TABLET
     Dates: end: 20101212
  8. CALCIPARINE [Concomitant]
  9. AXEPIM [Suspect]
     Indication: ACINETOBACTER INFECTION
     Dosage: 07DEC10. DOSE REDUCED TO 3G ON 25OCT10
     Route: 042
     Dates: start: 20101001
  10. CIPROFLOXACIN HYDROCHLORIDE [Suspect]
     Indication: ACINETOBACTER INFECTION
     Dosage: DOSE REDUCED TO 1000MG ON 25OCT10.
     Route: 048
     Dates: start: 20100920

REACTIONS (4)
  - HYPERCREATININAEMIA [None]
  - RESPIRATORY TRACT INFECTION [None]
  - RASH [None]
  - STATUS EPILEPTICUS [None]
